FAERS Safety Report 8409501-2 (Version None)
Quarter: 2012Q2

REPORT INFORMATION
  Report Type: 
  Country: None (occurrence: None)
  Receive Date: 20120323
  Receipt Date: 20110103
  Transmission Date: 20120825
  Serious: Yes (Hospitalization, Other)
  Sender: FDA-Public Use
  Company Number: 163-21880-11010232

PATIENT
  Age: 81 Year
  Sex: Female

DRUGS (4)
  1. LIPITOR [Concomitant]
  2. REVLIMID [Suspect]
     Indication: MULTIPLE MYELOMA
     Dosage: 10 MG, 1 IN 1 D, PO
     Route: 048
     Dates: start: 20101101, end: 20101201
  3. ASPIRIN [Concomitant]
  4. ACTOS [Concomitant]

REACTIONS (1)
  - CEREBROVASCULAR ACCIDENT [None]
